FAERS Safety Report 14554085 (Version 1)
Quarter: 2018Q1

REPORT INFORMATION
  Report Type: Spontaneous
  Country: US (occurrence: US)
  Receive Date: 20180208
  Receipt Date: 20180208
  Transmission Date: 20180509
  Serious: Yes (Hospitalization)
  Sender: FDA-Public Use
  Company Number: None

PATIENT
  Age: 70 Year
  Sex: Female
  Weight: 107.8 kg

DRUGS (1)
  1. CLINDAMYCIN. [Suspect]
     Active Substance: CLINDAMYCIN
     Indication: ORAL INFECTION
     Route: 048
     Dates: start: 20110929, end: 20111006

REACTIONS (2)
  - Diarrhoea [None]
  - Clostridium difficile infection [None]

NARRATIVE: CASE EVENT DATE: 20120314
